FAERS Safety Report 4519798-7 (Version None)
Quarter: 2004Q4

REPORT INFORMATION
  Report Type: 
  Country: None (occurrence: None)
  Receive Date: 20041207
  Receipt Date: 20041203
  Transmission Date: 20050328
  Serious: Yes (Hospitalization)
  Sender: FDA-Public Use
  Company Number: US-JNJFOC-20040906254

PATIENT
  Sex: Male

DRUGS (9)
  1. DURAGESIC [Suspect]
     Route: 062
  2. DURAGESIC [Suspect]
     Route: 062
  3. GABAPENTIN [Concomitant]
     Route: 049
  4. OXYCODONE HCL [Concomitant]
     Route: 049
  5. QUETIAPINE [Concomitant]
     Route: 049
  6. VENLAFAXINE HCL [Concomitant]
     Route: 049
  7. BACTRIM DS [Concomitant]
     Route: 049
  8. BACTRIM DS [Concomitant]
     Indication: PROSTATITIS
     Route: 049
  9. DIAZEPAM [Concomitant]
     Indication: ANXIETY
     Dosage: 5 MG, ORALLY, EVERY 4-6 HOURS AS NEEDED
     Route: 049

REACTIONS (7)
  - CONFUSIONAL STATE [None]
  - DISORIENTATION [None]
  - INTENTIONAL MISUSE [None]
  - MEDICATION ERROR [None]
  - REFUSAL OF TREATMENT BY PATIENT [None]
  - RESPIRATORY DEPRESSION [None]
  - SELF INJURIOUS BEHAVIOUR [None]
